FAERS Safety Report 8175305-1 (Version None)
Quarter: 2012Q1

REPORT INFORMATION
  Report Type: 
  Country: None (occurrence: None)
  Receive Date: 20120229
  Receipt Date: 20120222
  Transmission Date: 20120608
  Serious: Yes (Hospitalization)
  Sender: FDA-Public Use
  Company Number: PHHY2012ID015909

PATIENT
  Age: 3 Year
  Weight: 11 kg

DRUGS (1)
  1. CATAFLAM [Suspect]
     Indication: INFLAMMATION
     Dosage: 11 DRP, THREE TIMES A DAY (3X11 DROPS/DAY)
     Route: 048
     Dates: start: 20120221, end: 20120222

REACTIONS (3)
  - VOMITING [None]
  - DIARRHOEA [None]
  - CYANOSIS [None]
